FAERS Safety Report 8391808-9 (Version None)
Quarter: 2012Q2

REPORT INFORMATION
  Report Type: 
  Country: None (occurrence: None)
  Receive Date: 20120529
  Receipt Date: 20120522
  Transmission Date: 20120825
  Serious: Yes (Hospitalization)
  Sender: FDA-Public Use
  Company Number: US-GLAXOSMITHKLINE-A0903088A

PATIENT
  Sex: Male
  Weight: 84.5 kg

DRUGS (5)
  1. AVANDIA [Suspect]
     Indication: DIABETES MELLITUS
     Dosage: 8MG PER DAY
     Route: 048
     Dates: start: 20010101, end: 20051201
  2. HYTRIN [Concomitant]
  3. LOPRESSOR [Concomitant]
  4. LISINOPRIL [Concomitant]
  5. GLUCOPHAGE [Concomitant]

REACTIONS (6)
  - SYNCOPE [None]
  - CARDIOVASCULAR DISORDER [None]
  - CARDIOMEGALY [None]
  - MYOCARDIAL INFARCTION [None]
  - PLEURAL EFFUSION [None]
  - CORONARY ARTERY BYPASS [None]
